FAERS Safety Report 4955491-4 (Version None)
Quarter: 2006Q1

REPORT INFORMATION
  Report Type: 
  Country: None (occurrence: None)
  Receive Date: 20060328
  Receipt Date: 20060317
  Transmission Date: 20060701
  Serious: Yes (Hospitalization)
  Sender: FDA-Public Use
  Company Number: GR-GLAXOSMITHKLINE-B0417280A

PATIENT
  Age: 70 Year
  Sex: Male

DRUGS (3)
  1. AUGMENTIN '125' [Suspect]
     Indication: UPPER RESPIRATORY TRACT INFECTION
     Dosage: 1G TWICE PER DAY
     Route: 048
  2. GLUCOPHAGE [Concomitant]
     Route: 065
  3. SOLOSA [Concomitant]
     Route: 065

REACTIONS (1)
  - JAUNDICE [None]
